FAERS Safety Report 16202073 (Version 1)
Quarter: 2019Q2

REPORT INFORMATION
  Report Type: Spontaneous
  Country: US (occurrence: US)
  Receive Date: 20190415
  Receipt Date: 20190415
  Transmission Date: 20190711
  Serious: Yes (Death)
  Sender: FDA-Public Use
  Company Number: None

PATIENT
  Age: 68 Year
  Sex: Male

DRUGS (4)
  1. CLOPIDOGREL [Concomitant]
     Active Substance: CLOPIDOGREL BISULFATE
  2. ASPIRIN. [Concomitant]
     Active Substance: ASPIRIN
  3. ALTEPLASE. [Suspect]
     Active Substance: ALTEPLASE
  4. HEPARIN [Suspect]
     Active Substance: HEPARIN SODIUM
     Route: 041

REACTIONS (2)
  - Haemorrhagic cerebral infarction [None]
  - Mental disorder [None]

NARRATIVE: CASE EVENT DATE: 20180307
